FAERS Safety Report 11865653 (Version 2)
Quarter: 2016Q1

REPORT INFORMATION
  Report Type: Spontaneous
  Country: US (occurrence: US)
  Receive Date: 20151223
  Receipt Date: 20160111
  Transmission Date: 20160526
  Serious: Yes (Hospitalization, Other)
  Sender: FDA-Public Use
  Company Number: ALCN2015US007925

PATIENT
  Age: 24 Week
  Sex: Male
  Weight: .7 kg

DRUGS (4)
  1. LEVOFLOXACIN. [Concomitant]
     Active Substance: LEVOFLOXACIN
     Indication: POSTOPERATIVE CARE
     Route: 047
  2. PREDNISOLONE ACETATE. [Suspect]
     Active Substance: PREDNISOLONE ACETATE
     Indication: POSTOPERATIVE CARE
     Route: 047
  3. BACITRACIN OPHTHALMIC OINTMENT [Concomitant]
     Indication: POSTOPERATIVE CARE
     Route: 047
  4. CYCLOPENTOLATE HCL [Suspect]
     Active Substance: CYCLOPENTOLATE HYDROCHLORIDE
     Indication: POSTOPERATIVE CARE
     Route: 047

REACTIONS (4)
  - Drug administered to patient of inappropriate age [Recovered/Resolved with Sequelae]
  - Ulcerative keratitis [Recovered/Resolved with Sequelae]
  - Corneal epithelium defect [Recovered/Resolved with Sequelae]
  - Corneal opacity [Recovered/Resolved with Sequelae]
